FAERS Safety Report 8283570-5 (Version None)
Quarter: 2012Q2

REPORT INFORMATION
  Report Type: 
  Country: None (occurrence: None)
  Receive Date: 20120413
  Receipt Date: 20120330
  Transmission Date: 20120825
  Serious: Yes (Other)
  Sender: FDA-Public Use
  Company Number: US-ENDO PHARMACEUTICALS INC.-PERC20120061

PATIENT
  Sex: Female
  Weight: 89.892 kg

DRUGS (11)
  1. TRAMADOL HCL [Suspect]
     Indication: PAIN
     Dosage: UNK
  2. BACLOFEN [Suspect]
     Indication: MUSCLE SPASMS
     Dosage: UNK
     Route: 048
  3. PERCOCET [Suspect]
     Indication: PAIN
     Dosage: 10MG/325MG
     Route: 048
  4. PRISTIQ [Suspect]
     Indication: DEPRESSION
     Route: 048
  5. ADDERALL 5 [Suspect]
     Indication: ANXIETY
     Dosage: 30 MG
  6. XANAX [Suspect]
     Indication: HEADACHE
  7. NEURONTIN [Suspect]
  8. XANAX [Suspect]
     Indication: ANXIETY
     Route: 048
  9. NEURONTIN [Suspect]
     Indication: MUSCLE SPASTICITY
  10. SYNTHROID [Suspect]
     Indication: THYROID DISORDER
  11. BETASERON [Suspect]
     Indication: MULTIPLE SCLEROSIS

REACTIONS (5)
  - ANXIETY [None]
  - CATATONIA [None]
  - HEADACHE [None]
  - DETOXIFICATION [None]
  - DYSPEPSIA [None]
